FAERS Safety Report 21878933 (Version 1)
Quarter: 2023Q1

REPORT INFORMATION
  Report Type: Spontaneous
  Country: US (occurrence: None)
  Receive Date: 20230117
  Receipt Date: 20230117
  Transmission Date: 20230418
  Serious: Yes (unspecified)
  Sender: FDA-Public Use
  Company Number: None

PATIENT
  Age: 55 Year
  Sex: Male
  Weight: 130.5 kg

DRUGS (1)
  1. ARIPIPRAZOLE [Suspect]
     Active Substance: ARIPIPRAZOLE

REACTIONS (10)
  - Respiration abnormal [None]
  - Rash [None]
  - Hyperhidrosis [None]
  - Thirst [None]
  - Lymphadenopathy [None]
  - Arthralgia [None]
  - Muscle spasms [None]
  - Muscle spasms [None]
  - Swelling [None]
  - Injection related reaction [None]

NARRATIVE: CASE EVENT DATE: 20230117
